FAERS Safety Report 24909151 (Version 1)
Quarter: 2025Q1

REPORT INFORMATION
  Report Type: Report from Study
  Country: DK (occurrence: DK)
  Receive Date: 20250131
  Receipt Date: 20250131
  Transmission Date: 20250409
  Serious: Yes (Hospitalization, Other)
  Sender: ABBVIE
  Company Number: DK-JNJFOC-20250129424

PATIENT
  Age: 80 Year
  Sex: Male

DRUGS (1)
  1. IBRUTINIB [Suspect]
     Active Substance: IBRUTINIB
     Indication: Mantle cell lymphoma
     Route: 048
     Dates: start: 20201106, end: 20230710

REACTIONS (3)
  - Lung disorder [Unknown]
  - General physical health deterioration [Unknown]
  - Hypertension [Unknown]

NARRATIVE: CASE EVENT DATE: 20210702
